FAERS Safety Report 7108449-3 (Version None)
Quarter: 2010Q4

REPORT INFORMATION
  Report Type: 
  Country: None (occurrence: None)
  Receive Date: 20101117
  Receipt Date: 20101115
  Transmission Date: 20110411
  Serious: Yes (Hospitalization)
  Sender: FDA-Public Use
  Company Number: B0683706A

PATIENT
  Sex: Male

DRUGS (6)
  1. CLAMOXYL [Suspect]
     Indication: ENDOCARDITIS
     Dosage: 2G SIX TIMES PER DAY
     Route: 042
     Dates: start: 20100206, end: 20100301
  2. VANCOMYCIN HCL [Concomitant]
     Indication: ENDOCARDITIS
     Dosage: 4G PER DAY
     Route: 048
     Dates: start: 20100206, end: 20100223
  3. GENTAMICIN [Concomitant]
     Indication: ENDOCARDITIS
     Dosage: 5MGK PER DAY
     Route: 065
     Dates: start: 20100204, end: 20100206
  4. OFLOCET [Concomitant]
     Indication: ENDOCARDITIS
     Dosage: 200MG TWICE PER DAY
     Route: 048
     Dates: start: 20100204, end: 20100206
  5. BRISTOPEN [Concomitant]
     Indication: ENDOCARDITIS
     Route: 048
     Dates: start: 20100204, end: 20100206
  6. LOVENOX [Concomitant]
     Dosage: .4ML PER DAY
     Route: 058
     Dates: start: 20100204, end: 20100222

REACTIONS (7)
  - CHILLS [None]
  - CHOLESTASIS [None]
  - DRUG RASH WITH EOSINOPHILIA AND SYSTEMIC SYMPTOMS [None]
  - HISTIOCYTOSIS HAEMATOPHAGIC [None]
  - PYREXIA [None]
  - RASH MACULO-PAPULAR [None]
  - SKIN TEST POSITIVE [None]
